FAERS Safety Report 14567966 (Version 2)
Quarter: 2018Q1

REPORT INFORMATION
  Report Type: Report from Study
  Country: US (occurrence: US)
  Receive Date: 20180223
  Receipt Date: 20180308
  Transmission Date: 20180509
  Serious: Yes (Death, Other)
  Sender: FDA-Public Use
  Company Number: US-GILEAD-2018-0322736

PATIENT
  Age: 76 Year
  Sex: Male

DRUGS (1)
  1. IDELALISIB [Suspect]
     Active Substance: IDELALISIB
     Indication: LEUKAEMIA
     Dosage: 150 MG, BID
     Route: 048
     Dates: start: 20160623

REACTIONS (1)
  - Death [Fatal]

NARRATIVE: CASE EVENT DATE: 20180219
